FAERS Safety Report 11824931 (Version 4)
Quarter: 2016Q1

REPORT INFORMATION
  Report Type: Report from Study
  Country: US (occurrence: US)
  Receive Date: 20151210
  Receipt Date: 20160111
  Transmission Date: 20160525
  Serious: No
  Sender: FDA-Public Use
  Company Number: US-AMGEN-USASL2015129574

PATIENT
  Age: 41 Year
  Sex: Male

DRUGS (1)
  1. ENBREL [Suspect]
     Active Substance: ETANERCEPT
     Indication: PSORIASIS
     Dosage: 50 MG, QWK
     Route: 065
     Dates: start: 201311

REACTIONS (4)
  - Infection [Unknown]
  - Arthropod bite [Unknown]
  - Localised infection [Unknown]
  - Laceration [Unknown]

NARRATIVE: CASE EVENT DATE: 201411
